FAERS Safety Report 10629185 (Version 1)
Quarter: 2014Q4

REPORT INFORMATION
  Report Type: Spontaneous
  Country: US (occurrence: US)
  Receive Date: 20141205
  Receipt Date: 20141205
  Transmission Date: 20150529
  Serious: No
  Sender: FDA-Public Use
  Company Number: US-BRISTOL-MYERS SQUIBB COMPANY-21364500

PATIENT
  Age: 79 Year
  Sex: Male
  Weight: 104.76 kg

DRUGS (8)
  1. AMLODIPINE [Concomitant]
     Active Substance: AMLODIPINE BESYLATE
  2. METOPROLOL [Concomitant]
     Active Substance: METOPROLOL
  3. LYRICA [Concomitant]
     Active Substance: PREGABALIN
     Indication: NEUROPATHY PERIPHERAL
  4. HUMULIN 70/30 [Concomitant]
     Active Substance: INSULIN HUMAN
  5. TRICOR [Concomitant]
     Active Substance: FENOFIBRATE
  6. BYETTA [Suspect]
     Active Substance: EXENATIDE
     Indication: TYPE 2 DIABETES MELLITUS
     Dosage: ONGOING
     Route: 058
     Dates: start: 20140724
  7. PRAVASTATIN SODIUM. [Concomitant]
     Active Substance: PRAVASTATIN SODIUM
     Indication: BLOOD CHOLESTEROL
  8. LASIX [Concomitant]
     Active Substance: FUROSEMIDE

REACTIONS (6)
  - Product quality issue [Unknown]
  - Injection site haemorrhage [Unknown]
  - Drug administration error [Unknown]
  - Drug ineffective [Unknown]
  - Blood glucose increased [Unknown]
  - Weight decreased [Recovered/Resolved]

NARRATIVE: CASE EVENT DATE: 201407
